FAERS Safety Report 23021904 (Version 1)
Quarter: 2023Q4

REPORT INFORMATION
  Report Type: Spontaneous
  Country: ES (occurrence: ES)
  Receive Date: 20231003
  Receipt Date: 20231003
  Transmission Date: 20240109
  Serious: Yes (Death)
  Sender: FDA-Public Use
  Company Number: ES-AEMPS-1377083

PATIENT
  Age: 53 Year
  Sex: Male

DRUGS (4)
  1. NOREPINEPHRINE [Interacting]
     Active Substance: NOREPINEPHRINE
     Indication: Haemodynamic instability
     Dosage: NAD UP TO 0.3 GAMMAS
     Route: 040
     Dates: start: 2023
  2. SEVOFLURANE [Interacting]
     Active Substance: SEVOFLURANE
     Indication: Product used for unknown indication
     Dosage: 5 MILLILITER, Q1H
     Route: 055
     Dates: start: 20230414, end: 20230418
  3. PRIMPERAN [Concomitant]
     Active Substance: METOCLOPRAMIDE HYDROCHLORIDE
     Indication: Product used for unknown indication
     Dosage: UNK
     Route: 065
     Dates: start: 20230314, end: 20230418
  4. ERYTHROMYCIN [Concomitant]
     Active Substance: ERYTHROMYCIN
     Indication: Product used for unknown indication
     Dosage: UNK
     Route: 065
     Dates: start: 20230314, end: 20230414

REACTIONS (1)
  - Ventricular tachycardia [Fatal]
